FAERS Safety Report 11928171 (Version 1)
Quarter: 2016Q1

REPORT INFORMATION
  Report Type: Spontaneous
  Country: US (occurrence: US)
  Receive Date: 20160119
  Receipt Date: 20160119
  Transmission Date: 20160526
  Serious: Yes (Death)
  Sender: FDA-Public Use
  Company Number: US-MEDA-2016010072

PATIENT
  Age: 33 Year
  Sex: Male

DRUGS (12)
  1. BACLOFEN. [Suspect]
     Active Substance: BACLOFEN
  2. POLYETHYLENE GLYCOL [Suspect]
     Active Substance: POLYETHYLENE GLYCOLS
  3. LACTULOSE. [Suspect]
     Active Substance: LACTULOSE
  4. MORPHINE [Suspect]
     Active Substance: MORPHINE
  5. HYDROMORPHONE [Suspect]
     Active Substance: HYDROMORPHONE
  6. OXYBUTYNIN [Suspect]
     Active Substance: OXYBUTYNIN
  7. ACETAMINOPHEN AND DIPHENHYDRAMINE HYDROCHLORIDE [Suspect]
     Active Substance: ACETAMINOPHEN\DIPHENHYDRAMINE HYDROCHLORIDE
  8. CARISOPRODOL. [Suspect]
     Active Substance: CARISOPRODOL
  9. TIZANIDINE. [Suspect]
     Active Substance: TIZANIDINE
  10. CLONAZEPAM. [Suspect]
     Active Substance: CLONAZEPAM
  11. PROMETHAZINE [Suspect]
     Active Substance: PROMETHAZINE\PROMETHAZINE HYDROCHLORIDE
  12. LORAZEPAM. [Suspect]
     Active Substance: LORAZEPAM

REACTIONS (1)
  - Completed suicide [Fatal]

NARRATIVE: CASE EVENT DATE: 2014
